FAERS Safety Report 8375673 (Version 2)
Quarter: 2012Q4

REPORT INFORMATION
  Report Type: Report from Study
  Country: US (occurrence: US)
  Receive Date: 20120129
  Receipt Date: 20120915
  Transmission Date: 20130627
  Serious: Yes (Hospitalization)
  Sender: FDA-Public Use
  Company Number: US-ABBOTT-11P-163-0887608-00

PATIENT
  Age: 38 Year
  Sex: Female

DRUGS (4)
  1. HUMIRA 40 MG/0.8 ML PEN [Suspect]
     Indication: CROHN^S DISEASE
     Route: 058
     Dates: start: 20101001
  2. PRENATAL VITAMINS [Suspect]
     Indication: PRODUCT USED FOR UNKNOWN INDICATION
  3. NEEVO [Concomitant]
  4. TYLENOL REGULAR [Concomitant]

REACTIONS (3)
  - Intestinal resection [Not Recovered/Not Resolved]
  - Anaemia [Unknown]
  - Glucose tolerance test abnormal [Unknown]
